FAERS Safety Report 6025858-4 (Version None)
Quarter: 2008Q4

REPORT INFORMATION
  Report Type: 
  Country: None (occurrence: None)
  Receive Date: 20081224
  Receipt Date: 20081209
  Transmission Date: 20090506
  Serious: Yes (Hospitalization)
  Sender: FDA-Public Use
  Company Number: 8040184

PATIENT
  Age: 47 Year
  Sex: Female

DRUGS (2)
  1. KEPPRA [Suspect]
  2. TRILEPTAL [Suspect]

REACTIONS (6)
  - CEREBROVASCULAR ACCIDENT [None]
  - CONVULSION [None]
  - HEPATIC FAILURE [None]
  - RENAL FAILURE NEONATAL [None]
  - RESPIRATORY FAILURE [None]
  - RHABDOMYOLYSIS [None]
